FAERS Safety Report 22596178 (Version 1)
Quarter: 2023Q2

REPORT INFORMATION
  Report Type: Spontaneous
  Country: US (occurrence: US)
  Receive Date: 20230613
  Receipt Date: 20230613
  Transmission Date: 20230721
  Serious: No
  Sender: FDA-Public Use
  Company Number: US-RIGEL PHARMACEUTICALS, INC.-2022FOS000647

PATIENT
  Age: 50 Year
  Sex: Female

DRUGS (1)
  1. TAVALISSE [Suspect]
     Active Substance: FOSTAMATINIB
     Indication: Immune thrombocytopenia
     Dosage: 100 MG, BID
     Route: 048
     Dates: start: 20200905

REACTIONS (7)
  - Calcinosis [Unknown]
  - Nasopharyngitis [Unknown]
  - Platelet count [Unknown]
  - Liver disorder [Unknown]
  - Blood alkaline phosphatase increased [Unknown]
  - Laboratory test [Unknown]
  - Hepatic enzyme increased [Unknown]

NARRATIVE: CASE EVENT DATE: 20220701
